FAERS Safety Report 24881281 (Version 1)
Quarter: 2025Q1

REPORT INFORMATION
  Report Type: Report from Study
  Country: CA (occurrence: CA)
  Receive Date: 20250124
  Receipt Date: 20250124
  Transmission Date: 20250409
  Serious: Yes (Hospitalization)
  Sender: ABBVIE
  Company Number: CA-ABBVIE-6098132

PATIENT
  Age: 78 Year
  Sex: Female

DRUGS (1)
  1. RINVOQ [Suspect]
     Active Substance: UPADACITINIB
     Indication: Rheumatoid arthritis
     Route: 048
     Dates: start: 20240412

REACTIONS (5)
  - Cholelithiasis [Recovering/Resolving]
  - Fall [Unknown]
  - Pyrexia [Unknown]
  - Hepatic enzyme decreased [Unknown]
  - Chills [Unknown]

NARRATIVE: CASE EVENT DATE: 20250112
